FAERS Safety Report 21963416 (Version 2)
Quarter: 2023Q1

REPORT INFORMATION
  Report Type: Report from Study
  Country: FR (occurrence: None)
  Receive Date: 20230207
  Receipt Date: 20230214
  Transmission Date: 20230418
  Serious: Yes (Death, Life-Threatening, Hospitalization)
  Sender: FDA-Public Use
  Company Number: FR-ROCHE-3271105

PATIENT
  Age: 83 Year
  Sex: Female

DRUGS (9)
  1. ATEZOLIZUMAB [Suspect]
     Active Substance: ATEZOLIZUMAB
     Indication: Non-small cell lung cancer
     Dosage: LAST ADMINISTRATION OF STUDY TREATMENT 27/DEC/2022
     Route: 065
     Dates: start: 20220531
  2. PACLITAXEL [Suspect]
     Active Substance: PACLITAXEL
     Indication: Non-small cell lung cancer
     Dosage: D1, 8, 15, EVERY 4 WEEKS
     Route: 065
     Dates: start: 20220531
  3. CARBOPLATIN [Suspect]
     Active Substance: CARBOPLATIN
     Indication: Non-small cell lung cancer
     Dosage: AUC 6
     Route: 065
     Dates: start: 20220531
  4. DICLOFENAC [Concomitant]
     Active Substance: DICLOFENAC
  5. ROSUVASTATIN [Concomitant]
     Active Substance: ROSUVASTATIN
  6. CAPTOPRIL [Concomitant]
     Active Substance: CAPTOPRIL
  7. FUROSEMIDE [Concomitant]
     Active Substance: FUROSEMIDE
  8. CRESTOR [Concomitant]
     Active Substance: ROSUVASTATIN CALCIUM
  9. POTASSIUM CHLORIDE [Concomitant]
     Active Substance: POTASSIUM CHLORIDE

REACTIONS (5)
  - Hepatic failure [Not Recovered/Not Resolved]
  - Renal failure [Not Recovered/Not Resolved]
  - Sepsis [Not Recovered/Not Resolved]
  - Pleural effusion [Recovered/Resolved]
  - Kidney infection [Fatal]

NARRATIVE: CASE EVENT DATE: 20230113
